FAERS Safety Report 9279977 (Version 2)
Quarter: 2013Q2

REPORT INFORMATION
  Report Type: Spontaneous
  Country: JP (occurrence: JP)
  Receive Date: 20130509
  Receipt Date: 20130520
  Transmission Date: 20140414
  Serious: Yes (Hospitalization)
  Sender: FDA-Public Use
  Company Number: JP-ROCHE-1220953

PATIENT
  Age: 73 Year
  Sex: Male
  Weight: 53 kg

DRUGS (20)
  1. HERCEPTIN [Suspect]
     Indication: METASTATIC GASTRIC CANCER
     Route: 041
     Dates: start: 20120403, end: 20120403
  2. HERCEPTIN [Suspect]
     Route: 041
     Dates: start: 20120426, end: 20120426
  3. HERCEPTIN [Suspect]
     Route: 041
     Dates: start: 20120614, end: 20120614
  4. HERCEPTIN [Suspect]
     Route: 041
     Dates: start: 20120719, end: 20120719
  5. HERCEPTIN [Suspect]
     Route: 041
     Dates: start: 20120905, end: 20121031
  6. XELODA [Suspect]
     Indication: METASTATIC GASTRIC CANCER
     Dosage: IT IS ADMINISTER/ONE WEEKLY HOLIDAY MEDICINE FOR TWO WEEKS.
     Route: 048
     Dates: start: 20120403, end: 20120417
  7. XELODA [Suspect]
     Indication: METASTATIC GASTRIC CANCER
     Dosage: IT IS ADMINISTER/ONE WEEKLY HOLIDAY MEDICINE FOR TWO WEEKS.
     Route: 048
     Dates: start: 20120426, end: 20120509
  8. XELODA [Suspect]
     Indication: METASTATIC GASTRIC CANCER
     Dosage: IT IS ADMINISTER/ONE WEEKLY HOLIDAY MEDICINE FOR TWO WEEKS.
     Route: 048
     Dates: start: 20120613, end: 20120627
  9. XELODA [Suspect]
     Indication: METASTATIC GASTRIC CANCER
     Dosage: IT IS ADMINISTER/ONE WEEKLY HOLIDAY MEDICINE FOR TWO WEEKS.
     Route: 048
     Dates: start: 20120718, end: 20120801
  10. XELODA [Suspect]
     Indication: METASTATIC GASTRIC CANCER
     Dosage: IT IS ADMINISTER/ONE WEEKLY HOLIDAY MEDICINE FOR TWO WEEKS.
     Route: 048
     Dates: start: 20120905, end: 20120919
  11. XELODA [Suspect]
     Indication: METASTATIC GASTRIC CANCER
     Dosage: IT IS ADMINISTER/ONE WEEKLY HOLIDAY MEDICINE FOR TWO WEEKS.
     Route: 048
     Dates: start: 20121031, end: 20121113
  12. CISPLATIN [Concomitant]
     Indication: GASTRIC CANCER
     Route: 041
     Dates: start: 20120403, end: 20120403
  13. CISPLATIN [Concomitant]
     Indication: GASTRIC CANCER
     Route: 041
     Dates: start: 20120426, end: 20120426
  14. CISPLATIN [Concomitant]
     Indication: GASTRIC CANCER
     Route: 041
     Dates: start: 20120614, end: 20120614
  15. CISPLATIN [Concomitant]
     Indication: GASTRIC CANCER
     Route: 041
     Dates: start: 20120719, end: 20120719
  16. CISPLATIN [Concomitant]
     Indication: GASTRIC CANCER
     Route: 041
     Dates: start: 20120905, end: 20120905
  17. CISPLATIN [Concomitant]
     Indication: GASTRIC CANCER
     Route: 041
     Dates: start: 20121031, end: 20121031
  18. TAKEPRON [Concomitant]
     Indication: PROPHYLAXIS
     Route: 048
     Dates: start: 20120405, end: 20130126
  19. DEXTROMETHORPHAN HYDROBROMIDE [Concomitant]
     Dosage: TON
     Route: 048
     Dates: start: 20130109, end: 20130202
  20. CEFOTIAM HYDROCHLORIDE [Concomitant]
     Indication: PROPHYLAXIS
     Route: 042
     Dates: start: 20130121, end: 20130122

REACTIONS (1)
  - Cerebral infarction [Not Recovered/Not Resolved]
